FAERS Safety Report 23044510 (Version 2)
Quarter: 2023Q4

REPORT INFORMATION
  Report Type: Spontaneous
  Country: US (occurrence: US)
  Receive Date: 20231009
  Receipt Date: 20231019
  Transmission Date: 20240110
  Serious: Yes (Hospitalization, Other)
  Sender: FDA-Public Use
  Company Number: US-ROCHE-3418386

PATIENT
  Age: 44 Year
  Sex: Male
  Weight: 111.23 kg

DRUGS (9)
  1. CLONAZEPAM [Suspect]
     Active Substance: CLONAZEPAM
     Indication: Product used for unknown indication
     Dates: start: 2019
  2. OCREVUS [Suspect]
     Active Substance: OCRELIZUMAB
     Indication: Secondary progressive multiple sclerosis
     Dates: start: 2019, end: 2022
  3. MAVENCLAD [Concomitant]
     Active Substance: CLADRIBINE
     Indication: Secondary progressive multiple sclerosis
     Dates: start: 202205
  4. BUPROPION [Concomitant]
     Active Substance: BUPROPION
     Dosage: TWO TIMES DAILY.
     Route: 048
  5. CHOLECALCIFEROL [Concomitant]
     Active Substance: CHOLECALCIFEROL
     Dosage: TAKE 5,000 UNITS BY MOUTH DAILY.
     Route: 048
  6. DALFAMPRIDINE [Concomitant]
     Active Substance: DALFAMPRIDINE
     Dosage: TWO TIMES DAILY.?DAILY DOSE: 20 MILLIGRAM
     Route: 048
  7. PROPRANOLOL [Concomitant]
     Active Substance: PROPRANOLOL HYDROCHLORIDE
     Dosage: DAILY DOSE: 1 DOSAGE FORM
     Route: 048
  8. ROSUVASTATIN [Concomitant]
     Active Substance: ROSUVASTATIN
     Dosage: NIGHTLY.
     Route: 048
  9. VENLAFAXINE [Concomitant]
     Active Substance: VENLAFAXINE HYDROCHLORIDE

REACTIONS (8)
  - COVID-19 [Unknown]
  - Multiple sclerosis [Unknown]
  - Multiple sclerosis [Unknown]
  - JC polyomavirus test positive [Unknown]
  - Pain [Unknown]
  - Hypokinesia [Unknown]
  - Peroneal nerve palsy [Unknown]
  - Fall [Unknown]

NARRATIVE: CASE EVENT DATE: 20201224
